FAERS Safety Report 7799362-7 (Version None)
Quarter: 2011Q4

REPORT INFORMATION
  Report Type: 
  Country: None (occurrence: None)
  Receive Date: 20111006
  Receipt Date: 20110929
  Transmission Date: 20120403
  Serious: Yes (Disabling)
  Sender: FDA-Public Use
  Company Number: JP-B.I. PHARMACEUTICALS,INC./RIDGEFIELD-2011-DE-05049GD

PATIENT
  Age: 68 Year
  Sex: Female
  Weight: 40.7 kg

DRUGS (8)
  1. DABIGATRAN [Suspect]
     Indication: PROPHYLAXIS
  2. DABIGATRAN [Suspect]
     Indication: CEREBRAL INFARCTION
     Dosage: 220 MG
     Route: 048
     Dates: start: 20110412, end: 20110412
  3. MAGMITT [Concomitant]
     Indication: CONSTIPATION
     Dosage: 990 MG
     Route: 048
  4. LANSOPRAZOLE [Concomitant]
     Indication: GASTRITIS
     Dosage: 30 MG
     Route: 048
  5. HEPARIN [Concomitant]
     Indication: PROPHYLAXIS
  6. PROCHLORPERAZINE [Concomitant]
     Indication: PROPHYLAXIS OF NAUSEA AND VOMITING
     Dosage: 15 MG
     Route: 048
  7. URSO 250 [Concomitant]
     Indication: HEPATIC FUNCTION ABNORMAL
     Dosage: 3 G
     Route: 048
  8. HEPARIN [Concomitant]
     Indication: CEREBRAL INFARCTION
     Dosage: 10000 U
     Route: 042
     Dates: start: 20110401, end: 20110412

REACTIONS (2)
  - DRUG INEFFECTIVE [None]
  - CEREBRAL INFARCTION [None]
